FAERS Safety Report 19752326 (Version 1)
Quarter: 2021Q3

REPORT INFORMATION
  Report Type: Spontaneous
  Country: US (occurrence: US)
  Receive Date: 20210827
  Receipt Date: 20210827
  Transmission Date: 20211014
  Serious: No
  Sender: FDA-Public Use
  Company Number: US-ESPERIONTHERAPEUTICS-2021USA01671

PATIENT
  Age: 74 Year
  Sex: Female
  Weight: 72.56 kg

DRUGS (9)
  1. NEXLETOL [Suspect]
     Active Substance: BEMPEDOIC ACID
     Indication: TYPE IIA HYPERLIPIDAEMIA
     Dosage: 180 MILLIGRAM, QD
     Route: 048
     Dates: start: 202104, end: 202105
  2. FUROSEMIDE. [Concomitant]
     Active Substance: FUROSEMIDE
     Indication: CORONARY ARTERY DISEASE
     Dosage: 40 MILLIGRAM, TWO TABLETS DAILY
     Route: 048
  3. LISINOPRIL. [Concomitant]
     Active Substance: LISINOPRIL
     Indication: CORONARY ARTERY DISEASE
     Dosage: 2.5 MILLIGRAM, QD
     Route: 048
  4. NITROGLYCERIN. [Concomitant]
     Active Substance: NITROGLYCERIN
     Indication: CORONARY ARTERY DISEASE
     Dosage: 0.4 MILLIGRAM, PRN
     Route: 065
  5. TYLENOL [Concomitant]
     Active Substance: ACETAMINOPHEN
     Indication: PAIN
     Dosage: UNK
     Route: 048
  6. ATENOLOL. [Concomitant]
     Active Substance: ATENOLOL
     Indication: CORONARY ARTERY DISEASE
     Dosage: 25 MILLIGRAM,0.5 BID
     Route: 048
  7. POTASSIUM [Concomitant]
     Active Substance: POTASSIUM
     Indication: CORONARY ARTERY DISEASE
     Dosage: 10 MILLIEQUIVALENT, BID
     Route: 048
  8. BUPROPION. [Concomitant]
     Active Substance: BUPROPION
     Indication: PAIN
     Dosage: 300 MILLIGRAM, QD
     Route: 048
  9. ASPIRIN [ACETYLSALICYLIC ACID] [Concomitant]
     Active Substance: ASPIRIN
     Indication: CORONARY ARTERY DISEASE
     Dosage: 81 MILLIGRAM, QD
     Route: 065

REACTIONS (7)
  - Blood cholesterol abnormal [Unknown]
  - Visual impairment [Unknown]
  - Low density lipoprotein abnormal [Unknown]
  - Total cholesterol/HDL ratio abnormal [Unknown]
  - Pain in extremity [Recovered/Resolved]
  - Meniscus injury [Not Recovered/Not Resolved]
  - High density lipoprotein abnormal [Unknown]

NARRATIVE: CASE EVENT DATE: 202104
